FAERS Safety Report 9473654 (Version 1)
Quarter: 2013Q3

REPORT INFORMATION
  Report Type: Spontaneous
  Country: US (occurrence: US)
  Receive Date: 20130823
  Receipt Date: 20130823
  Transmission Date: 20140515
  Serious: No
  Sender: FDA-Public Use
  Company Number: US-BRISTOL-MYERS SQUIBB COMPANY-16839060

PATIENT
  Age: 83 Year
  Sex: Female
  Weight: 80 kg

DRUGS (11)
  1. SPRYCEL [Suspect]
     Indication: CHRONIC MYELOID LEUKAEMIA
     Dosage: DOSAGE: 100MG (14 COUNT)
  2. TIKOSYN [Concomitant]
  3. TOPROL [Concomitant]
  4. PROTONIX [Concomitant]
  5. FUROSEMIDE [Concomitant]
     Dosage: 1 DF = 60-80MG
  6. SYNTHROID [Concomitant]
  7. POTASSIUM CHLORIDE [Concomitant]
  8. LOSARTAN [Concomitant]
  9. NORVASC [Concomitant]
  10. WARFARIN [Concomitant]
  11. CITRUCEL [Concomitant]

REACTIONS (3)
  - Diarrhoea [Unknown]
  - Constipation [Unknown]
  - Abdominal discomfort [Unknown]
